FAERS Safety Report 24047108 (Version 1)
Quarter: 2024Q3

REPORT INFORMATION
  Report Type: Spontaneous
  Country: US (occurrence: None)
  Receive Date: 20240702
  Receipt Date: 20240702
  Transmission Date: 20241017
  Serious: Yes (unspecified)
  Sender: Public
  Company Number: None

PATIENT
  Age: 68 Year
  Sex: Female
  Weight: 87.75 kg

DRUGS (21)
  1. OZEMPIC [Suspect]
     Active Substance: SEMAGLUTIDE
     Indication: Type 2 diabetes mellitus
     Dosage: OTHER QUANTITY : 1 INJECTION(S);?OTHER FREQUENCY : 1/WEEK;?
     Route: 058
     Dates: start: 20240201
  2. MYRBETRIQ [Concomitant]
     Active Substance: MIRABEGRON
  3. hydrocholorthiazide [Concomitant]
  4. OZEMPIC [Concomitant]
     Active Substance: SEMAGLUTIDE
  5. CLARITIN [Concomitant]
     Active Substance: LORATADINE
  6. ASPIRIN [Concomitant]
     Active Substance: ASPIRIN
  7. DICLOFENAC [Concomitant]
     Active Substance: DICLOFENAC
  8. DEVICE [Concomitant]
     Active Substance: DEVICE
  9. MULTI-VITAMIN [Concomitant]
     Active Substance: .ALPHA.-TOCOPHEROL ACETATE, DL-\ASCORBIC ACID\CYANOCOBALAMIN\FLUORIDE ION\FOLIC ACID\NIACIN\PYRIDOXI
  10. DIETARY SUPPLEMENT\HERBALS\MILK THISTLE [Concomitant]
     Active Substance: MILK THISTLE
  11. PROBIOTICS NOS [Concomitant]
     Active Substance: PROBIOTICS NOS
  12. KRILL OIL [Concomitant]
     Active Substance: DIETARY SUPPLEMENT\KRILL OIL
  13. DIMETHYL SULFONE [Concomitant]
     Active Substance: DIMETHYL SULFONE
  14. GLUCOSAMINE [Concomitant]
     Active Substance: GLUCOSAMINE
  15. COLLAGEN [Concomitant]
     Active Substance: COLLAGEN
  16. CHONDROITIN [Concomitant]
     Active Substance: CHONDROITIN
  17. VITAMIN C + E [Concomitant]
  18. TUMARIC ROOT [Concomitant]
  19. KERATIN [Concomitant]
     Active Substance: KERATIN
  20. MAGNESIUM [Concomitant]
     Active Substance: MAGNESIUM
  21. CALCIUM CARBONATE [Concomitant]
     Active Substance: CALCIUM CARBONATE

REACTIONS (2)
  - Vomiting [None]
  - Diarrhoea [None]

NARRATIVE: CASE EVENT DATE: 20240618
